FAERS Safety Report 4589164-7 (Version None)
Quarter: 2005Q1

REPORT INFORMATION
  Report Type: 
  Country: None (occurrence: None)
  Receive Date: 20050215
  Receipt Date: 20050215
  Transmission Date: 20050727
  Serious: Yes (Life-Threatening)
  Sender: FDA-Public Use
  Company Number: None

PATIENT
  Age: 39 Year
  Sex: Female

DRUGS (2)
  1. KEPPRA [Suspect]
     Indication: EPILEPSY
     Dosage: 250 MG TWICE DAILY ORAL
     Route: 048
     Dates: start: 20020213, end: 20020724
  2. TEGRETOL-XR [Concomitant]

REACTIONS (6)
  - ABNORMAL BEHAVIOUR [None]
  - ANXIETY [None]
  - DEPRESSION [None]
  - EMOTIONAL DISTRESS [None]
  - PERSONALITY DISORDER [None]
  - SUICIDAL IDEATION [None]
